FAERS Safety Report 8381803 (Version 2)
Quarter: 2013Q1

REPORT INFORMATION
  Report Type: Spontaneous
  Country: US (occurrence: US)
  Receive Date: 20120201
  Receipt Date: 20130221
  Transmission Date: 20140127
  Serious: Yes (Other)
  Sender: FDA-Public Use
  Company Number: US-PFIZER INC-2010009113

PATIENT
  Age: 54 Year
  Sex: Male

DRUGS (3)
  1. NEURONTIN [Suspect]
     Indication: EPILEPSY
     Dosage: 400 MG, 2X/DAY
  2. KEPPRA XR [Concomitant]
     Dosage: UNK
  3. DEPAKOTE ER [Concomitant]
     Dosage: UNK

REACTIONS (1)
  - Convulsion [Unknown]
